FAERS Safety Report 10297915 (Version 2)
Quarter: 2014Q3

REPORT INFORMATION
  Report Type: Spontaneous
  Country: US (occurrence: US)
  Receive Date: 20140711
  Receipt Date: 20140814
  Transmission Date: 20150326
  Serious: Yes (Other)
  Sender: FDA-Public Use
  Company Number: US-PFIZER INC-2014184795

PATIENT
  Age: 55 Year
  Sex: Female
  Weight: 77.1 kg

DRUGS (3)
  1. AUGMENTIN [Suspect]
     Active Substance: AMOXICILLIN\CLAVULANATE POTASSIUM
     Indication: INFECTIOUS COLITIS
     Dosage: 875 MG, 2X/DAY
     Route: 048
     Dates: start: 20140423, end: 20140503
  2. FLAGYL [Suspect]
     Active Substance: METRONIDAZOLE\METRONIDAZOLE HYDROCHLORIDE
     Indication: INFECTIOUS COLITIS
     Dosage: 500 MG, 3X/DAY
     Route: 048
     Dates: start: 20140423, end: 20140503
  3. LORAZEPAM. [Concomitant]
     Active Substance: LORAZEPAM
     Dosage: 1 MG

REACTIONS (7)
  - Weight decreased [Not Recovered/Not Resolved]
  - Aphagia [Unknown]
  - Malaise [Not Recovered/Not Resolved]
  - Diarrhoea [Not Recovered/Not Resolved]
  - Fungal infection [Not Recovered/Not Resolved]
  - Chromaturia [Unknown]
  - Tongue discolouration [Not Recovered/Not Resolved]

NARRATIVE: CASE EVENT DATE: 2014
